FAERS Safety Report 6306806-6 (Version None)
Quarter: 2009Q3

REPORT INFORMATION
  Report Type: 
  Country: None (occurrence: None)
  Receive Date: 20090811
  Receipt Date: 20090811
  Transmission Date: 20100115
  Serious: Yes (Death)
  Sender: FDA-Public Use
  Company Number: None

PATIENT
  Sex: Male

DRUGS (13)
  1. GLEEVEC [Suspect]
     Indication: PROSTATE CANCER
     Dosage: 300 MG QD PO
     Route: 048
     Dates: start: 20090617, end: 20090805
  2. SORAFENIB [Suspect]
     Indication: PROSTATE CANCER
     Dosage: 400 MG QD PO
     Route: 048
     Dates: start: 20090617, end: 20090805
  3. FENTANYL [Concomitant]
  4. DARVOCET [Concomitant]
  5. ONDASETRON [Concomitant]
  6. NEURONTON [Concomitant]
  7. PREDNISONE [Concomitant]
  8. XANAX [Concomitant]
  9. PROTONIX [Concomitant]
  10. TERAZOSM [Concomitant]
  11. POTASSIUM CHLORIDE [Concomitant]
  12. LASIX [Concomitant]
  13. ZOLADEX [Concomitant]

REACTIONS (1)
  - MALIGNANT NEOPLASM PROGRESSION [None]
